FAERS Safety Report 9618772 (Version 5)
Quarter: 2014Q1

REPORT INFORMATION
  Report Type: Report from Study
  Country: AU (occurrence: AU)
  Receive Date: 20131014
  Receipt Date: 20140211
  Transmission Date: 20141002
  Serious: Yes (Hospitalization, Other)
  Sender: FDA-Public Use
  Company Number: PHHY2010AU77159

PATIENT
  Age: 62 Year
  Sex: Male
  Weight: 88 kg

DRUGS (6)
  1. CLOZARIL [Suspect]
     Indication: SCHIZOAFFECTIVE DISORDER
     Dosage: 175 MG, DAILY
     Route: 048
     Dates: start: 20021114, end: 20131101
  2. CLOZARIL [Suspect]
     Indication: PSYCHOTIC DISORDER
  3. RULIDE [Suspect]
     Dosage: UNK
  4. VALPROATE SODIUM [Concomitant]
     Indication: EPILEPSY
     Dosage: 2200 MG
     Route: 048
     Dates: start: 2006
  5. ANTIBIOTICS [Concomitant]
     Dosage: UNK UKN, UNK
  6. LITHIUM CARBONATE [Concomitant]
     Indication: MOOD ALTERED
     Dosage: 750 MG
     Route: 048
     Dates: start: 2006

REACTIONS (7)
  - Leukopenia [Recovered/Resolved]
  - White blood cell count decreased [Recovered/Resolved]
  - Neutropenia [Recovered/Resolved]
  - Neutrophil count decreased [Recovered/Resolved]
  - Pneumonia [Recovered/Resolved]
  - Lower respiratory tract infection [Recovered/Resolved]
  - Upper respiratory tract infection [Unknown]
